FAERS Safety Report 14487494 (Version 1)
Quarter: 2018Q1

REPORT INFORMATION
  Report Type: Spontaneous
  Country: US (occurrence: US)
  Receive Date: 20180204
  Receipt Date: 20180204
  Transmission Date: 20180509
  Serious: Yes (Life-Threatening)
  Sender: FDA-Public Use
  Company Number: None

PATIENT
  Age: 42 Year
  Sex: Female
  Weight: 99 kg

DRUGS (3)
  1. SERTRALINE [Concomitant]
     Active Substance: SERTRALINE HYDROCHLORIDE
  2. ADVIL [Concomitant]
     Active Substance: IBUPROFEN
  3. CONTRAVE [Suspect]
     Active Substance: BUPROPION HYDROCHLORIDE\NALTREXONE HYDROCHLORIDE
     Indication: BINGE EATING
     Route: 048
     Dates: start: 20180127, end: 20180203

REACTIONS (7)
  - Pruritus [None]
  - Product formulation issue [None]
  - Hypersensitivity [None]
  - Rash generalised [None]
  - Paraesthesia oral [None]
  - Hypoaesthesia oral [None]
  - Lip swelling [None]

NARRATIVE: CASE EVENT DATE: 20180204
